FAERS Safety Report 6978352-8 (Version None)
Quarter: 2010Q3

REPORT INFORMATION
  Report Type: 
  Country: None (occurrence: None)
  Receive Date: 20100913
  Receipt Date: 20100831
  Transmission Date: 20110219
  Serious: Yes (Other)
  Sender: FDA-Public Use
  Company Number: PHHY2010JP57896

PATIENT
  Age: 72 Year
  Sex: Male

DRUGS (1)
  1. AFINITOR [Suspect]
     Indication: METASTATIC RENAL CELL CARCINOMA
     Dosage: 10 MG DAILY
     Route: 048
     Dates: start: 20100809, end: 20100817

REACTIONS (2)
  - INTERSTITIAL LUNG DISEASE [None]
  - METASTASES TO LUNG [None]
